FAERS Safety Report 11537597 (Version 7)
Quarter: 2015Q4

REPORT INFORMATION
  Report Type: Report from Study
  Country: DE (occurrence: DE)
  Receive Date: 20150922
  Receipt Date: 20151222
  Transmission Date: 20160304
  Serious: Yes (Hospitalization)
  Sender: FDA-Public Use
  Company Number: DE-SA-2015SA142048

PATIENT
  Age: 32 Year
  Sex: Male

DRUGS (1)
  1. LEMTRADA [Suspect]
     Active Substance: ALEMTUZUMAB
     Indication: MULTIPLE SCLEROSIS
     Route: 041
     Dates: start: 20141124, end: 20141128

REACTIONS (1)
  - Blood creatinine increased [Recovered/Resolved]

NARRATIVE: CASE EVENT DATE: 20150910
